FAERS Safety Report 4779913-7 (Version None)
Quarter: 2005Q3

REPORT INFORMATION
  Report Type: 
  Country: None (occurrence: None)
  Receive Date: 20050914
  Receipt Date: 20050430
  Transmission Date: 20060218
  Serious: Yes (Life-Threatening, Hospitalization)
  Sender: FDA-Public Use
  Company Number: 163-20785-05050037

PATIENT
  Age: 56 Year
  Sex: Male

DRUGS (20)
  1. THALOMID [Suspect]
     Indication: MULTIPLE MYELOMA
     Dosage: QD, ORAL;  200 MG, QD, ORAL;  100 MG, QD, ORAL
     Route: 048
     Dates: start: 20050107, end: 20050110
  2. THALOMID [Suspect]
     Indication: MULTIPLE MYELOMA
     Dosage: QD, ORAL;  200 MG, QD, ORAL;  100 MG, QD, ORAL
     Route: 048
     Dates: start: 20050316, end: 20050425
  3. THALOMID [Suspect]
     Indication: MULTIPLE MYELOMA
     Dosage: QD, ORAL;  200 MG, QD, ORAL;  100 MG, QD, ORAL
     Route: 048
     Dates: start: 20041124
  4. VELCADE [Suspect]
     Indication: MULTIPLE MYELOMA
     Dosage: UNKNOWN; 2 MG; 2 MG
     Dates: start: 20050104, end: 20050104
  5. VELCADE [Suspect]
     Indication: MULTIPLE MYELOMA
     Dosage: UNKNOWN; 2 MG; 2 MG
     Dates: start: 20050107, end: 20050107
  6. VELCADE [Suspect]
     Indication: MULTIPLE MYELOMA
     Dosage: UNKNOWN; 2 MG; 2 MG
     Dates: start: 20041124
  7. DEXAMETHASONE [Suspect]
     Indication: MULTIPLE MYELOMA
     Dosage: ORAL; 40 MG, ORAL; 20 MG, QD, ORAL
     Route: 048
     Dates: start: 20050215, end: 20050224
  8. DEXAMETHASONE [Suspect]
     Indication: MULTIPLE MYELOMA
     Dosage: ORAL; 40 MG, ORAL; 20 MG, QD, ORAL
     Route: 048
     Dates: start: 20050405, end: 20050408
  9. DEXAMETHASONE [Suspect]
     Indication: MULTIPLE MYELOMA
     Dosage: ORAL; 40 MG, ORAL; 20 MG, QD, ORAL
     Route: 048
     Dates: start: 20041124
  10. CISPLATIN [Suspect]
     Indication: MULTIPLE MYELOMA
     Dates: start: 20041124
  11. CISPLATIN [Suspect]
     Indication: MULTIPLE MYELOMA
     Dates: start: 20050104
  12. ADRIAMYCIN PFS [Suspect]
     Indication: MULTIPLE MYELOMA
     Dates: start: 20041124
  13. ADRIAMYCIN PFS [Suspect]
     Indication: MULTIPLE MYELOMA
     Dates: start: 20050104
  14. CYTOXAN [Suspect]
     Indication: MULTIPLE MYELOMA
     Dates: start: 20041124
  15. CYTOXAN [Suspect]
     Indication: MULTIPLE MYELOMA
     Dates: start: 20050104
  16. ETOPOSIDE [Suspect]
     Indication: MULTIPLE MYELOMA
     Dates: start: 20041124
  17. ETOPOSIDE [Suspect]
     Indication: MULTIPLE MYELOMA
     Dates: start: 20050104
  18. MELPHALAN (MELPHALAN) [Suspect]
     Indication: MULTIPLE MYELOMA
     Dosage: 394 MG, QD, INTRAVENOUS;  384MG, QD, INTRAVENOUS
     Route: 042
     Dates: start: 20050216, end: 20050216
  19. MELPHALAN (MELPHALAN) [Suspect]
     Indication: MULTIPLE MYELOMA
     Dosage: 394 MG, QD, INTRAVENOUS;  384MG, QD, INTRAVENOUS
     Route: 042
     Dates: start: 20050505, end: 20050505
  20. LOVENOX [Concomitant]

REACTIONS (5)
  - GASTROINTESTINAL HAEMORRHAGE [None]
  - LEUKOPENIA [None]
  - ORTHOSTATIC HYPOTENSION [None]
  - PANCYTOPENIA [None]
  - SYNCOPE [None]
